FAERS Safety Report 4286880-1 (Version None)
Quarter: 2004Q1

REPORT INFORMATION
  Report Type: 
  Country: None (occurrence: None)
  Receive Date: 20040128
  Receipt Date: 20040112
  Transmission Date: 20041129
  Serious: Yes (Death)
  Sender: FDA-Public Use
  Company Number: 233533

PATIENT
  Age: 47 Year
  Sex: Female
  Weight: 79 kg

DRUGS (6)
  1. NOVOSEVEN [Suspect]
     Indication: OPERATIVE HAEMORRHAGE
     Dosage: 4.8 MG, SINGLE, INTRAVENOUS
     Route: 042
     Dates: start: 20030801, end: 20030801
  2. EPOGEN [Concomitant]
  3. HUMULIN (INSULIN ISOPHANE, HUMAN BIOSYNTHETIC) [Concomitant]
  4. INDERAL [Concomitant]
  5. LACTULOSE [Concomitant]
  6. PREVACID [Concomitant]

REACTIONS (5)
  - CARDIAC ARREST [None]
  - CIRCULATORY COLLAPSE [None]
  - GENERAL PHYSICAL HEALTH DETERIORATION [None]
  - HYPERCOAGULATION [None]
  - PULMONARY EMBOLISM [None]
